FAERS Safety Report 8612820-8 (Version None)
Quarter: 2012Q3

REPORT INFORMATION
  Report Type: 
  Country: None (occurrence: None)
  Receive Date: 20120822
  Receipt Date: 20111110
  Transmission Date: 20120928
  Serious: No
  Sender: FDA-Public Use
  Company Number: US-ASTRAZENECA-2010SE53356

PATIENT
  Age: 64 Year
  Sex: Female

DRUGS (5)
  1. PULMICORT [Suspect]
     Route: 055
  2. SYMBICORT [Suspect]
     Indication: CHRONIC OBSTRUCTIVE PULMONARY DISEASE
     Dosage: 160/4.5 MCG WITH UNKNOWN FREQUENCY
     Route: 055
  3. PREDNISONE TAB [Concomitant]
  4. RHINOCORT [Suspect]
     Route: 045
  5. NEXIUM [Suspect]
     Route: 048

REACTIONS (9)
  - PNEUMONIA [None]
  - MALAISE [None]
  - BRONCHITIS [None]
  - NOCTURNAL DYSPNOEA [None]
  - DRUG DOSE OMISSION [None]
  - ARTHRITIS [None]
  - DYSPNOEA [None]
  - NON-CARDIAC CHEST PAIN [None]
  - GASTROOESOPHAGEAL REFLUX DISEASE [None]
